FAERS Safety Report 6994066-2 (Version None)
Quarter: 2010Q3

REPORT INFORMATION
  Report Type: 
  Country: None (occurrence: None)
  Receive Date: 20100917
  Receipt Date: 20100331
  Transmission Date: 20110219
  Serious: No
  Sender: FDA-Public Use
  Company Number: US-ASTRAZENECA-2010SE15888

PATIENT
  Age: 670 Month
  Sex: Female
  Weight: 101.6 kg

DRUGS (8)
  1. SEROQUEL [Suspect]
     Route: 048
     Dates: start: 20060412
  2. AMBIEN CR [Concomitant]
     Dosage: 10-12.5 MG QHS
     Route: 048
     Dates: start: 20051025, end: 20060412
  3. VYTORIN [Concomitant]
     Dosage: 1 QD
     Route: 048
     Dates: start: 20060412
  4. ATIVAN [Concomitant]
     Route: 048
  5. CELEXA [Concomitant]
     Route: 048
  6. DIOVAN HCT [Concomitant]
     Dosage: 12.5-160 MG 1 QD
     Route: 048
  7. NEXIUM [Concomitant]
     Route: 048
  8. NORVASC [Concomitant]
     Route: 048

REACTIONS (2)
  - ESSENTIAL HYPERTENSION [None]
  - TYPE 2 DIABETES MELLITUS [None]
